FAERS Safety Report 12197734 (Version 2)
Quarter: 2016Q3

REPORT INFORMATION
  Report Type: Spontaneous
  Country: US (occurrence: US)
  Receive Date: 20160322
  Receipt Date: 20160726
  Transmission Date: 20161109
  Serious: Yes (Hospitalization)
  Sender: FDA-Public Use
  Company Number: US-BEH-2016060207

PATIENT
  Age: 5 Year
  Sex: Male
  Weight: 13.61 kg

DRUGS (7)
  1. EPIPEN JR [Concomitant]
     Active Substance: EPINEPHRINE
  2. AMOXICILLIN. [Concomitant]
     Active Substance: AMOXICILLIN
  3. HIZENTRA [Suspect]
     Active Substance: HUMAN IMMUNOGLOBULIN G
     Dosage: UNK
     Route: 065
     Dates: start: 201104
  4. HIZENTRA [Suspect]
     Active Substance: HUMAN IMMUNOGLOBULIN G
     Indication: IMMUNODEFICIENCY
     Dosage: STRENGTH OF DOSAGE FORM: 1 GM 5ML VIAL
     Route: 058
  5. CEPHALEXIN. [Concomitant]
     Active Substance: CEPHALEXIN
  6. DIPHENHYDRAMINE. [Concomitant]
     Active Substance: DIPHENHYDRAMINE
  7. LIDOCAINE/PRILOCAINE [Concomitant]
     Active Substance: LIDOCAINE\PRILOCAINE

REACTIONS (2)
  - Eye infection [Recovering/Resolving]
  - Wheezing [Recovering/Resolving]

NARRATIVE: CASE EVENT DATE: 20160204
